FAERS Safety Report 15118624 (Version 1)
Quarter: 2018Q3

REPORT INFORMATION
  Report Type: Spontaneous
  Country: IT (occurrence: IT)
  Receive Date: 20180709
  Receipt Date: 20180709
  Transmission Date: 20181010
  Serious: Yes (Hospitalization)
  Sender: FDA-Public Use
  Company Number: IT-TEVA-2018-IT-921957

PATIENT
  Age: 43 Year
  Sex: Male

DRUGS (5)
  1. POSACONAZOLE [Suspect]
     Active Substance: POSACONAZOLE
     Indication: ANTIBIOTIC PROPHYLAXIS
     Route: 048
  2. VORICONAZOLE. [Suspect]
     Active Substance: VORICONAZOLE
     Indication: ASPERGILLUS INFECTION
     Route: 042
  3. CYTARABINE. [Suspect]
     Active Substance: CYTARABINE
     Indication: ACUTE MYELOID LEUKAEMIA
     Dosage: THE PATIENT DID NOT RECEIVE ANY FURTHER CHEMOTHERAPY
     Route: 065
  4. DAUNORUBICIN [Suspect]
     Active Substance: DAUNORUBICIN
     Indication: ACUTE MYELOID LEUKAEMIA
     Route: 065
  5. ETOPOSIDE. [Suspect]
     Active Substance: ETOPOSIDE
     Indication: ACUTE MYELOID LEUKAEMIA
     Route: 065

REACTIONS (9)
  - Bronchopulmonary aspergillosis [Recovering/Resolving]
  - Melaena [Unknown]
  - Intestinal perforation [Recovering/Resolving]
  - Neutropenia [Recovered/Resolved]
  - Gastrointestinal infection [Recovering/Resolving]
  - Gastrointestinal disorder [Unknown]
  - Hallucination [Unknown]
  - Aspergillus infection [Recovering/Resolving]
  - Haemodynamic instability [Unknown]
